FAERS Safety Report 11467092 (Version 2)
Quarter: 2016Q3

REPORT INFORMATION
  Report Type: Spontaneous
  Country: FR (occurrence: FR)
  Receive Date: 20150908
  Receipt Date: 20160704
  Transmission Date: 20161109
  Serious: Yes (Hospitalization)
  Sender: FDA-Public Use
  Company Number: FR-ROCHE-1631291

PATIENT
  Age: 75 Year
  Sex: Male

DRUGS (7)
  1. ROCEPHINE [Suspect]
     Active Substance: CEFTRIAXONE SODIUM
     Route: 058
     Dates: start: 20150616, end: 20150616
  2. CEFOTAXIME [Concomitant]
     Active Substance: CEFOTAXIME SODIUM
     Route: 065
     Dates: start: 20150616
  3. ROVAMYCINE [Concomitant]
     Active Substance: SPIRAMYCIN
     Route: 065
     Dates: start: 20150615
  4. ROCEPHINE [Suspect]
     Active Substance: CEFTRIAXONE SODIUM
     Route: 048
     Dates: start: 20150617, end: 20150622
  5. ROCEPHINE [Suspect]
     Active Substance: CEFTRIAXONE SODIUM
     Indication: PNEUMONIA
     Route: 048
     Dates: start: 20150615, end: 20150615
  6. ROVAMYCINE [Concomitant]
     Active Substance: SPIRAMYCIN
     Route: 065
     Dates: start: 20150616
  7. LEVOFLOXACINE [Concomitant]
     Active Substance: LEVOFLOXACIN
     Route: 065
     Dates: start: 20150617

REACTIONS (1)
  - Liver injury [Recovered/Resolved]

NARRATIVE: CASE EVENT DATE: 20150617
